FAERS Safety Report 6818270-9 (Version None)
Quarter: 2010Q3

REPORT INFORMATION
  Report Type: 
  Country: None (occurrence: None)
  Receive Date: 20100706
  Receipt Date: 20070319
  Transmission Date: 20110219
  Serious: No
  Sender: FDA-Public Use
  Company Number: US-PFIZER INC-2007002410

PATIENT
  Sex: Female
  Weight: 72.57 kg

DRUGS (3)
  1. ZITHROMAX [Suspect]
     Indication: OROPHARYNGEAL PAIN
     Dates: start: 20070103
  2. VICODIN [Concomitant]
  3. LYRICA [Concomitant]

REACTIONS (2)
  - CHILLS [None]
  - DIARRHOEA [None]
